FAERS Safety Report 18488292 (Version 3)
Quarter: 2021Q1

REPORT INFORMATION
  Report Type: Report from Study
  Country: None (occurrence: US)
  Receive Date: 20201110
  Receipt Date: 20210115
  Transmission Date: 20210419
  Serious: Yes (Hospitalization)
  Sender: FDA-Public Use
  Company Number: US-ABBVIE-20P-163-3645807-00

PATIENT
  Age: 57 Year
  Sex: Female

DRUGS (3)
  1. 5?AZACYTIDINE [Concomitant]
     Active Substance: AZACITIDINE
     Indication: ACUTE MYELOID LEUKAEMIA
     Dosage: ON DAYS 1?7, C3 D1
     Route: 065
     Dates: start: 20201012, end: 20201018
  2. VENETOCLAX. [Suspect]
     Active Substance: VENETOCLAX
     Indication: ACUTE MYELOID LEUKAEMIA
     Dosage: ON DAYS 1?28, C3D1
     Route: 048
     Dates: start: 20201012, end: 20201108
  3. MAGROLIMAB [Concomitant]
     Active Substance: MAGROLIMAB
     Indication: ACUTE MYELOID LEUKAEMIA
     Dosage: ON DAYS 1 AND 15, C3D1
     Route: 042
     Dates: start: 20201012

REACTIONS (1)
  - Skin infection [Recovered/Resolved]

NARRATIVE: CASE EVENT DATE: 20201103
